FAERS Safety Report 16172267 (Version 2)
Quarter: 2020Q2

REPORT INFORMATION
  Report Type: Spontaneous
  Country: FI (occurrence: FI)
  Receive Date: 20190409
  Receipt Date: 20200413
  Transmission Date: 20200713
  Serious: Yes (Hospitalization, Other)
  Sender: FDA-Public Use
  Company Number: FI-ACCORD-119435

PATIENT
  Age: 3 Year
  Sex: Male

DRUGS (2)
  1. ARIPIPRAZOLE. [Suspect]
     Active Substance: ARIPIPRAZOLE
  2. IBUPROFEN. [Concomitant]
     Active Substance: IBUPROFEN
     Indication: OROPHARYNGEAL PAIN

REACTIONS (18)
  - Blood albumin decreased [Recovered/Resolved]
  - Somnolence [Recovered/Resolved]
  - Hypotonia [Recovered/Resolved]
  - Pharyngeal erythema [Recovered/Resolved]
  - Decreased appetite [Recovered/Resolved]
  - Fatigue [Recovered/Resolved]
  - Tremor [Recovered/Resolved]
  - Asthenia [Recovered/Resolved]
  - Blepharospasm [Recovered/Resolved]
  - Accidental exposure to product by child [Unknown]
  - Toxicity to various agents [Unknown]
  - Dermatitis atopic [Recovered/Resolved]
  - Abdominal tenderness [Recovered/Resolved]
  - Oliguria [Recovered/Resolved]
  - Ataxia [Recovered/Resolved]
  - Altered state of consciousness [Recovered/Resolved]
  - Dysphonia [Recovered/Resolved]
  - Balance disorder [Recovered/Resolved]
